FAERS Safety Report 24106434 (Version 1)
Quarter: 2024Q3

REPORT INFORMATION
  Report Type: Spontaneous
  Country: US (occurrence: US)
  Receive Date: 20240717
  Receipt Date: 20240717
  Transmission Date: 20241017
  Serious: No
  Sender: SANDOZ
  Company Number: US-SANDOZ-SDZ2024US065589

PATIENT
  Sex: Female

DRUGS (1)
  1. HYDROXYZINE PAMOATE [Suspect]
     Active Substance: HYDROXYZINE PAMOATE
     Indication: Anxiety
     Dosage: 1 EVERY 8 HOURS AS NEEDED.
     Route: 065

REACTIONS (6)
  - Therapeutic response unexpected [Unknown]
  - Insomnia [Unknown]
  - Malaise [Unknown]
  - Migraine [Unknown]
  - General physical health deterioration [Unknown]
  - Overdose [Unknown]
